FAERS Safety Report 4623473-8 (Version None)
Quarter: 2005Q1

REPORT INFORMATION
  Report Type: 
  Country: None (occurrence: None)
  Receive Date: 20050330
  Receipt Date: 20050315
  Transmission Date: 20050727
  Serious: Yes (Hospitalization)
  Sender: FDA-Public Use
  Company Number: DSA_26120_2005

PATIENT
  Age: 39 Year
  Sex: Female

DRUGS (1)
  1. TAVOR [Suspect]
     Dosage: 20 MG ONCE PO
     Route: 048
     Dates: start: 20050310, end: 20050310

REACTIONS (3)
  - INTENTIONAL MISUSE [None]
  - SOMNOLENCE [None]
  - TACHYCARDIA [None]
